FAERS Safety Report 5735518-2 (Version None)
Quarter: 2008Q2

REPORT INFORMATION
  Report Type: 
  Country: None (occurrence: None)
  Receive Date: 20080512
  Receipt Date: 20080502
  Transmission Date: 20081010
  Serious: Yes (Death, Life-Threatening)
  Sender: FDA-Public Use
  Company Number: US-BAXTER-2008BH004634

PATIENT
  Age: 11 Year
  Sex: Male

DRUGS (2)
  1. CEFTRIAXONE [Suspect]
     Indication: PNEUMONIA
     Dosage: DOSE UNIT:UNKNOWN
     Route: 065
  2. ANTI-D IMMUNOGLOBULIN [Concomitant]
     Indication: THROMBOCYTOPENIA
     Route: 065

REACTIONS (7)
  - CEREBRAL HAEMORRHAGE [None]
  - DISSEMINATED INTRAVASCULAR COAGULATION [None]
  - DRUG SPECIFIC ANTIBODY PRESENT [None]
  - HAEMOGLOBINURIA [None]
  - HAEMOLYSIS [None]
  - HYPOTENSION [None]
  - RENAL FAILURE ACUTE [None]
